FAERS Safety Report 4611055-3 (Version None)
Quarter: 2005Q2

REPORT INFORMATION
  Report Type: 
  Country: None (occurrence: None)
  Receive Date: 20050314
  Receipt Date: 20040402
  Transmission Date: 20051028
  Serious: Yes (Death, Other)
  Sender: FDA-Public Use
  Company Number: US_0402101139

PATIENT
  Age: 67 Year
  Sex: Male
  Weight: 65 kg

DRUGS (7)
  1. GEMZAR [Suspect]
     Indication: METASTATIC CARCINOMA OF THE BLADDER
     Dosage: 1380 MG OTHER
     Dates: start: 20030728, end: 20031006
  2. TAXOL [Concomitant]
  3. KYTRIL [Concomitant]
  4. DECADRON [Concomitant]
  5. BENADRYL [Concomitant]
  6. TAGAMET [Concomitant]
  7. ARANESP [Concomitant]

REACTIONS (5)
  - ABDOMINAL PAIN [None]
  - ANOREXIA [None]
  - FATIGUE [None]
  - MALIGNANT NEOPLASM PROGRESSION [None]
  - WHITE BLOOD CELL COUNT DECREASED [None]
